FAERS Safety Report 14364791 (Version 20)
Quarter: 2019Q1

REPORT INFORMATION
  Report Type: Report from Study
  Country: US (occurrence: US)
  Receive Date: 20180108
  Receipt Date: 20190329
  Transmission Date: 20190417
  Serious: Yes (Hospitalization)
  Sender: FDA-Public Use
  Company Number: US-ACTELION-A-US2017-155408

PATIENT
  Age: 72 Year
  Sex: Female
  Weight: 81.63 kg

DRUGS (10)
  1. ADCIRCA [Concomitant]
     Active Substance: TADALAFIL
  2. AMLODIPINE [Concomitant]
     Active Substance: AMLODIPINE BESYLATE
  3. VELETRI [Suspect]
     Active Substance: EPOPROSTENOL
     Dosage: 14 NG/KG, PER MIN
     Route: 042
  4. VELETRI [Suspect]
     Active Substance: EPOPROSTENOL
     Indication: PULMONARY ARTERIAL HYPERTENSION
     Dosage: 12 NG/KG, PER MIN
     Route: 042
  5. VELETRI [Suspect]
     Active Substance: EPOPROSTENOL
     Dosage: 11 NG/KG, PER MIN
     Route: 042
  6. VELETRI [Suspect]
     Active Substance: EPOPROSTENOL
     Dosage: 13 NG/KG, PER MIN
     Route: 042
  7. OPSUMIT [Concomitant]
     Active Substance: MACITENTAN
  8. VELETRI [Suspect]
     Active Substance: EPOPROSTENOL
     Dosage: 6 NG/KG, PER MIN
     Route: 042
  9. VELETRI [Suspect]
     Active Substance: EPOPROSTENOL
     Dosage: 10 NG/KG, PER MIN
     Route: 042
  10. ADEMPAS [Concomitant]
     Active Substance: RIOCIGUAT

REACTIONS (41)
  - Abdominal distension [Unknown]
  - Dyspnoea exertional [Unknown]
  - Pruritus generalised [Unknown]
  - Chills [Recovering/Resolving]
  - Vomiting [Unknown]
  - Diarrhoea [Unknown]
  - Pallor [Unknown]
  - Cardiac pacemaker insertion [Unknown]
  - Hospitalisation [Unknown]
  - Hepatic haemorrhage [Unknown]
  - Paracentesis [Unknown]
  - Dizziness [Unknown]
  - Back pain [Not Recovered/Not Resolved]
  - Cough [Recovering/Resolving]
  - Anaemia [Unknown]
  - Transfusion [Unknown]
  - Ascites [Unknown]
  - Heart rate increased [Unknown]
  - Palpitations [Unknown]
  - Dyspnoea [Unknown]
  - Blood pressure decreased [Recovering/Resolving]
  - Oedema [Recovering/Resolving]
  - Pyrexia [Recovering/Resolving]
  - Haematochezia [Unknown]
  - Hypoglycaemia [Unknown]
  - Unevaluable event [Unknown]
  - Lethargy [Unknown]
  - Epistaxis [Unknown]
  - Seasonal allergy [Unknown]
  - Gastrointestinal haemorrhage [Recovered/Resolved]
  - Blood creatinine increased [Unknown]
  - Condition aggravated [Unknown]
  - Catheter management [Recovered/Resolved]
  - Oedema peripheral [Unknown]
  - Arteriovenous malformation [Unknown]
  - Vascular cauterisation [Unknown]
  - Haemoglobin decreased [Unknown]
  - Respiratory distress [Unknown]
  - Catheter site pruritus [Unknown]
  - Fatigue [Unknown]
  - Device breakage [Recovered/Resolved]

NARRATIVE: CASE EVENT DATE: 2018
